FAERS Safety Report 12897669 (Version 9)
Quarter: 2019Q4

REPORT INFORMATION
  Report Type: Other
  Country: CA (occurrence: CA)
  Receive Date: 20161031
  Receipt Date: 20191002
  Transmission Date: 20200122
  Serious: Yes (Life-Threatening, Other)
  Sender: FDA-Public Use
  Company Number: CA-ASTELLAS-2016US041772

PATIENT
  Age: 45 Year
  Sex: Female

DRUGS (92)
  1. PROGRAF [Suspect]
     Active Substance: TACROLIMUS
     Indication: TRANSPLANT
     Route: 048
  2. PROGRAF [Suspect]
     Active Substance: TACROLIMUS
     Dosage: 4 MG, OTHER (EVERY 1 HOUR)
     Route: 048
  3. PROGRAF [Suspect]
     Active Substance: TACROLIMUS
     Route: 048
  4. PROGRAF [Suspect]
     Active Substance: TACROLIMUS
     Route: 048
  5. PROGRAF [Suspect]
     Active Substance: TACROLIMUS
     Route: 048
  6. PROGRAF [Suspect]
     Active Substance: TACROLIMUS
     Route: 048
  7. PROGRAF [Suspect]
     Active Substance: TACROLIMUS
     Route: 048
  8. PROGRAF [Suspect]
     Active Substance: TACROLIMUS
     Route: 048
  9. DACLIZUMAB [Suspect]
     Active Substance: DACLIZUMAB
     Indication: TRANSPLANT
     Route: 042
  10. ENBREL [Suspect]
     Active Substance: ETANERCEPT
     Route: 058
  11. ENBREL [Suspect]
     Active Substance: ETANERCEPT
     Route: 058
  12. NEORAL [Suspect]
     Active Substance: CYCLOSPORINE
     Dosage: UNK, UNKNOWN FREQ.
     Route: 065
  13. CELLCEPT [Suspect]
     Active Substance: MYCOPHENOLATE MOFETIL\MYCOPHENOLATE MOFETIL HYDROCHLORIDE
     Dosage: UNK, UNKNOWN FREQ.
     Route: 065
  14. GLICLAZIDE [Suspect]
     Active Substance: GLICLAZIDE
     Indication: PRODUCT USED FOR UNKNOWN INDICATION
     Dosage: UNK UNK, UNKNOWN FREQ.
     Route: 042
  15. PROGRAF [Suspect]
     Active Substance: TACROLIMUS
     Route: 048
  16. PROGRAF [Suspect]
     Active Substance: TACROLIMUS
     Dosage: UNK UNK, UNKNOWN FREQ.
     Route: 048
  17. ANTITHYMOCYTE IMMUNOGLOBULIN (RABBIT) [Suspect]
     Active Substance: LAPINE T-LYMPHOCYTE IMMUNE GLOBULIN
     Indication: TRANSPLANT
     Route: 065
  18. ENBREL [Suspect]
     Active Substance: ETANERCEPT
     Route: 058
  19. MYCOPHENOLATE MOFETIL. [Suspect]
     Active Substance: MYCOPHENOLATE MOFETIL
     Dosage: UNK, UNKNOWN FREQ.
     Route: 065
  20. ZENAPAX [Suspect]
     Active Substance: DACLIZUMAB
     Dosage: UNK, UNKNOWN FREQ.
     Route: 065
  21. ANTILYMPHOCYTE GLOBULIN [Suspect]
     Active Substance: THYMOCYTE IMMUNE GLOBULIN NOS
     Indication: PRODUCT USED FOR UNKNOWN INDICATION
     Route: 065
  22. PROGRAF [Suspect]
     Active Substance: TACROLIMUS
     Route: 048
  23. PROGRAF [Suspect]
     Active Substance: TACROLIMUS
     Route: 048
  24. PROGRAF [Suspect]
     Active Substance: TACROLIMUS
     Dosage: UNK, UNKNOWN FREQ.
     Route: 048
  25. PROGRAF [Suspect]
     Active Substance: TACROLIMUS
     Route: 048
  26. TACROLIMUS. [Suspect]
     Active Substance: TACROLIMUS
     Indication: PRODUCT USED FOR UNKNOWN INDICATION
     Route: 048
  27. TACROLIMUS. [Suspect]
     Active Substance: TACROLIMUS
     Route: 048
  28. ANTITHYMOCYTE IMMUNOGLOBULIN (RABBIT) [Suspect]
     Active Substance: LAPINE T-LYMPHOCYTE IMMUNE GLOBULIN
     Route: 065
  29. ANTITHYMOCYTE IMMUNOGLOBULIN (RABBIT) [Suspect]
     Active Substance: LAPINE T-LYMPHOCYTE IMMUNE GLOBULIN
     Route: 065
  30. ENBREL [Suspect]
     Active Substance: ETANERCEPT
     Route: 065
  31. MYCOPHENOLATE MOFETIL. [Suspect]
     Active Substance: MYCOPHENOLATE MOFETIL
     Dosage: 1000 UNK, UNKNOWN FREQ.
     Route: 048
  32. REMICADE [Suspect]
     Active Substance: INFLIXIMAB
     Indication: PRODUCT USED FOR UNKNOWN INDICATION
     Dosage: UNK, UNKNOWN FREQ.
     Route: 042
  33. REMICADE [Suspect]
     Active Substance: INFLIXIMAB
     Indication: PRODUCT USED FOR UNKNOWN INDICATION
     Dosage: UNK, UNKNOWN FREQ.
     Route: 042
  34. CELLCEPT [Suspect]
     Active Substance: MYCOPHENOLATE MOFETIL\MYCOPHENOLATE MOFETIL HYDROCHLORIDE
     Indication: TRANSPLANT
     Route: 048
  35. CELLCEPT [Suspect]
     Active Substance: MYCOPHENOLATE MOFETIL\MYCOPHENOLATE MOFETIL HYDROCHLORIDE
     Indication: PRODUCT USED FOR UNKNOWN INDICATION
     Dosage: UNK, UNKNOWN FREQ.
     Route: 065
  36. PROGRAF [Suspect]
     Active Substance: TACROLIMUS
     Route: 048
  37. PROGRAF [Suspect]
     Active Substance: TACROLIMUS
     Route: 048
  38. PROGRAF [Suspect]
     Active Substance: TACROLIMUS
     Route: 048
  39. PROGRAF [Suspect]
     Active Substance: TACROLIMUS
     Route: 048
  40. PROGRAF [Suspect]
     Active Substance: TACROLIMUS
     Route: 065
  41. TACROLIMUS. [Suspect]
     Active Substance: TACROLIMUS
     Route: 048
  42. TACROLIMUS. [Suspect]
     Active Substance: TACROLIMUS
     Route: 048
  43. TACROLIMUS. [Suspect]
     Active Substance: TACROLIMUS
     Route: 065
  44. ANTITHYMOCYTE IMMUNOGLOBULIN (RABBIT) [Suspect]
     Active Substance: LAPINE T-LYMPHOCYTE IMMUNE GLOBULIN
     Dosage: UNK, UNKNOWN FREQ.
     Route: 065
  45. ENBREL [Suspect]
     Active Substance: ETANERCEPT
     Indication: PRODUCT USED FOR UNKNOWN INDICATION
     Route: 065
  46. ENBREL [Suspect]
     Active Substance: ETANERCEPT
     Route: 048
  47. ENBREL [Suspect]
     Active Substance: ETANERCEPT
     Route: 058
  48. ENBREL [Suspect]
     Active Substance: ETANERCEPT
     Route: 058
  49. MYCOPHENOLATE MOFETIL. [Suspect]
     Active Substance: MYCOPHENOLATE MOFETIL
     Route: 048
  50. CELLCEPT [Suspect]
     Active Substance: MYCOPHENOLATE MOFETIL\MYCOPHENOLATE MOFETIL HYDROCHLORIDE
     Dosage: 100 MG, UNK
     Route: 048
  51. CELLCEPT [Suspect]
     Active Substance: MYCOPHENOLATE MOFETIL\MYCOPHENOLATE MOFETIL HYDROCHLORIDE
     Route: 065
  52. ZENAPAX [Suspect]
     Active Substance: DACLIZUMAB
     Dosage: UNK, UNKNOWN FREQ.
     Route: 042
  53. PROGRAF [Suspect]
     Active Substance: TACROLIMUS
     Dosage: 6 MG, OTHER (EVERY1 HOUR)
     Route: 048
  54. PROGRAF [Suspect]
     Active Substance: TACROLIMUS
     Route: 048
  55. PROGRAF [Suspect]
     Active Substance: TACROLIMUS
     Route: 048
  56. PROGRAF [Suspect]
     Active Substance: TACROLIMUS
     Route: 048
  57. PROGRAF [Suspect]
     Active Substance: TACROLIMUS
     Route: 048
  58. PROGRAF [Suspect]
     Active Substance: TACROLIMUS
     Dosage: UNK UNK, UNKNOWN FREQ.
     Route: 048
  59. PROGRAF [Suspect]
     Active Substance: TACROLIMUS
     Route: 048
  60. PROGRAF [Suspect]
     Active Substance: TACROLIMUS
     Dosage: UNK, UNKNOWN FREQ.
     Route: 065
  61. ANTITHYMOCYTE IMMUNOGLOBULIN (RABBIT) [Suspect]
     Active Substance: LAPINE T-LYMPHOCYTE IMMUNE GLOBULIN
     Route: 058
  62. DACLIZUMAB [Suspect]
     Active Substance: DACLIZUMAB
     Dosage: UNK UNK, UNKNOWN FREQ.
     Route: 065
  63. DACLIZUMAB [Suspect]
     Active Substance: DACLIZUMAB
     Dosage: UNK UNK, UNKNOWN FREQ.
     Route: 042
  64. ENBREL [Suspect]
     Active Substance: ETANERCEPT
     Route: 048
  65. ENBREL [Suspect]
     Active Substance: ETANERCEPT
     Route: 058
  66. NEORAL [Suspect]
     Active Substance: CYCLOSPORINE
     Indication: TRANSPLANT
     Dosage: UNK, UNKNOWN FREQ.
     Route: 065
  67. SULFASALAZINE. [Suspect]
     Active Substance: SULFASALAZINE
     Indication: RHEUMATOID ARTHRITIS
     Dosage: UNK UNK, UNKNOWN FREQ.
     Route: 065
  68. PROGRAF [Suspect]
     Active Substance: TACROLIMUS
     Dosage: 2000 MG, OTHER (EVERY HOUR)
     Route: 048
  69. PROGRAF [Suspect]
     Active Substance: TACROLIMUS
     Route: 048
  70. TACROLIMUS. [Suspect]
     Active Substance: TACROLIMUS
     Route: 048
  71. ANTITHYMOCYTE IMMUNOGLOBULIN (RABBIT) [Suspect]
     Active Substance: LAPINE T-LYMPHOCYTE IMMUNE GLOBULIN
     Route: 065
  72. ENBREL [Suspect]
     Active Substance: ETANERCEPT
     Route: 058
  73. RAPAMUNE [Suspect]
     Active Substance: SIROLIMUS
     Indication: TRANSPLANT
     Dosage: UNK, UNKNOWN FREQ.
     Route: 065
  74. CELLCEPT [Suspect]
     Active Substance: MYCOPHENOLATE MOFETIL\MYCOPHENOLATE MOFETIL HYDROCHLORIDE
     Route: 065
  75. CELLCEPT [Suspect]
     Active Substance: MYCOPHENOLATE MOFETIL\MYCOPHENOLATE MOFETIL HYDROCHLORIDE
     Route: 065
  76. ZENAPAX [Suspect]
     Active Substance: DACLIZUMAB
     Indication: PRODUCT USED FOR UNKNOWN INDICATION
     Route: 042
  77. PROGRAF [Suspect]
     Active Substance: TACROLIMUS
     Dosage: UNK UNK, UNKNOWN FREQ.
     Route: 048
  78. PROGRAF [Suspect]
     Active Substance: TACROLIMUS
     Route: 048
  79. PROGRAF [Suspect]
     Active Substance: TACROLIMUS
     Indication: TRANSPLANT
     Route: 048
  80. TACROLIMUS. [Suspect]
     Active Substance: TACROLIMUS
     Route: 048
  81. MYCOPHENOLATE MOFETIL. [Suspect]
     Active Substance: MYCOPHENOLATE MOFETIL
     Indication: TRANSPLANT
     Dosage: 2000 MG, ONCE DAILY (2 DF IN ONE DAY)
     Route: 048
  82. ANTILYMPHOCYTE IMMUNOGLOBULIN [Suspect]
     Active Substance: THYMOCYTE IMMUNE GLOBULIN NOS
     Indication: TRANSPLANT REJECTION
     Route: 065
  83. ANTILYMPHOCYTE IMMUNOGLOBULIN [Suspect]
     Active Substance: THYMOCYTE IMMUNE GLOBULIN NOS
     Route: 065
  84. ANTILYMPHOCYTE IMMUNOGLOBULIN [Suspect]
     Active Substance: THYMOCYTE IMMUNE GLOBULIN NOS
     Route: 065
  85. PROGRAF [Suspect]
     Active Substance: TACROLIMUS
     Route: 048
  86. PROGRAF [Suspect]
     Active Substance: TACROLIMUS
     Route: 048
  87. PROGRAF [Suspect]
     Active Substance: TACROLIMUS
     Route: 048
  88. DACLIZUMAB [Suspect]
     Active Substance: DACLIZUMAB
     Dosage: 5 MG/ML, UNKNOWN FREQ.
     Route: 042
  89. ENBREL [Suspect]
     Active Substance: ETANERCEPT
     Route: 058
  90. ENBREL [Suspect]
     Active Substance: ETANERCEPT
     Route: 058
  91. MYCOPHENOLATE MOFETIL. [Suspect]
     Active Substance: MYCOPHENOLATE MOFETIL
     Route: 048
  92. TEMAZEPAM. [Suspect]
     Active Substance: TEMAZEPAM
     Indication: PRODUCT USED FOR UNKNOWN INDICATION
     Dosage: UNK UNK, UNKNOWN FREQ.
     Route: 042

REACTIONS (16)
  - Transplant rejection [Not Recovered/Not Resolved]
  - Pain [Not Recovered/Not Resolved]
  - Overdose [Unknown]
  - Drug ineffective [Not Recovered/Not Resolved]
  - Incorrect route of product administration [Not Recovered/Not Resolved]
  - Ovarian cyst [Not Recovered/Not Resolved]
  - Pneumonia [Not Recovered/Not Resolved]
  - Liver function test abnormal [Not Recovered/Not Resolved]
  - Acne [Not Recovered/Not Resolved]
  - Alopecia [Not Recovered/Not Resolved]
  - Rheumatoid arthritis [Not Recovered/Not Resolved]
  - Condition aggravated [Not Recovered/Not Resolved]
  - Product use issue [Unknown]
  - Transplant dysfunction [Not Recovered/Not Resolved]
  - Loss of personal independence in daily activities [Not Recovered/Not Resolved]
  - Sleep disorder due to general medical condition, insomnia type [Not Recovered/Not Resolved]
